FAERS Safety Report 17056928 (Version 1)
Quarter: 2019Q4

REPORT INFORMATION
  Report Type: Spontaneous
  Country: US (occurrence: US)
  Receive Date: 20191022
  Receipt Date: 20191022
  Transmission Date: 20200122
  Serious: No
  Sender: FDA-Public Use
  Company Number: None

PATIENT
  Age: 25 Year
  Sex: Female

DRUGS (1)
  1. TEMOZOLOMIDE  CAP 140MG 3X5 [Suspect]
     Active Substance: TEMOZOLOMIDE
     Route: 048
     Dates: start: 201909

REACTIONS (1)
  - Fatigue [None]

NARRATIVE: CASE EVENT DATE: 20191022
